FAERS Safety Report 21208825 (Version 1)
Quarter: 2022Q3

REPORT INFORMATION
  Report Type: Spontaneous
  Country: US (occurrence: US)
  Receive Date: 20220812
  Receipt Date: 20220812
  Transmission Date: 20221027
  Serious: No
  Sender: FDA-Public Use
  Company Number: US-NOVARTISTESTPH-NVSC2022US182641

PATIENT
  Sex: Female

DRUGS (2)
  1. COMBIPATCH [Suspect]
     Active Substance: ESTRADIOL\NORETHINDRONE ACETATE
     Indication: Postmenopause
     Dosage: UNK (0.05/0.14 MG) (EVERY 3-4 DAYS)
     Route: 062
     Dates: start: 2022
  2. COMBIPATCH [Suspect]
     Active Substance: ESTRADIOL\NORETHINDRONE ACETATE
     Indication: Osteoporosis

REACTIONS (5)
  - Application site hypersensitivity [Unknown]
  - Application site irritation [Unknown]
  - Application site erythema [Unknown]
  - Application site pruritus [Unknown]
  - Application site inflammation [Unknown]

NARRATIVE: CASE EVENT DATE: 20220101
